FAERS Safety Report 5736087-3 (Version None)
Quarter: 2008Q2

REPORT INFORMATION
  Report Type: 
  Country: None (occurrence: None)
  Receive Date: 20080509
  Receipt Date: 20080424
  Transmission Date: 20081010
  Serious: Yes (Other)
  Sender: FDA-Public Use
  Company Number: DSU-2008-00608

PATIENT
  Sex: Female
  Weight: 90.7194 kg

DRUGS (2)
  1. BENICAR [Suspect]
     Indication: HYPERTENSION
     Dosage: 20 MG (20 MG, QD) PER ORAL
     Route: 048
     Dates: start: 20060101
  2. ABRAXANE [Suspect]
     Indication: BREAST CANCER
     Dosage: (EVERY 3 WEEKS), INTRAVENOUS (NOT OTHERWISE SPECIFIED)
     Route: 042

REACTIONS (2)
  - DRUG INTERACTION [None]
  - NEUTROPENIA [None]
